FAERS Safety Report 10287405 (Version 1)
Quarter: 2014Q3

REPORT INFORMATION
  Report Type: Spontaneous
  Country: US (occurrence: None)
  Receive Date: 20140707
  Receipt Date: 20140707
  Transmission Date: 20150326
  Serious: Yes (Hospitalization)
  Sender: FDA-Public Use
  Company Number: None

PATIENT
  Age: 90 Year
  Sex: Male
  Weight: 79.2 kg

DRUGS (1)
  1. CLOPIDOGREL [Suspect]
     Active Substance: CLOPIDOGREL BISULFATE
     Indication: CORONARY ARTERIAL STENT INSERTION
     Route: 048
     Dates: start: 20140101, end: 20140507

REACTIONS (10)
  - Weight decreased [None]
  - Abdominal pain upper [None]
  - Contusion [None]
  - Dizziness [None]
  - Fatigue [None]
  - Iron deficiency anaemia [None]
  - Gastric haemorrhage [None]
  - Peptic ulcer haemorrhage [None]
  - Diarrhoea haemorrhagic [None]
  - Early satiety [None]

NARRATIVE: CASE EVENT DATE: 20140501
